FAERS Safety Report 17415339 (Version 3)
Quarter: 2020Q4

REPORT INFORMATION
  Report Type: Spontaneous
  Country: FR (occurrence: FR)
  Receive Date: 20200213
  Receipt Date: 20201015
  Transmission Date: 20210113
  Serious: Yes (Other)
  Sender: FDA-Public Use
  Company Number: FR-ALLERGAN-2006543US

PATIENT
  Sex: Female
  Weight: 90 kg

DRUGS (3)
  1. BOTOX [Suspect]
     Active Substance: ONABOTULINUMTOXINA
     Dosage: 200 UNITS, SINGLE
     Route: 030
     Dates: start: 20200124, end: 20200124
  2. VESICARE [Concomitant]
     Active Substance: SOLIFENACIN SUCCINATE
     Indication: MICTURITION URGENCY
     Dosage: 5 MG, QD
     Route: 048
  3. BOTOX [Suspect]
     Active Substance: ONABOTULINUMTOXINA
     Indication: MUSCLE SPASTICITY
     Dosage: 200 UNITS, SINGLE
     Route: 030
     Dates: start: 20200124, end: 20200124

REACTIONS (5)
  - Eye pruritus [Unknown]
  - Eyelid ptosis [Unknown]
  - Multiple sclerosis relapse [Unknown]
  - Ocular hyperaemia [Unknown]
  - Diplopia [Unknown]

NARRATIVE: CASE EVENT DATE: 20200131
